FAERS Safety Report 9282948 (Version 2)
Quarter: 2013Q2

REPORT INFORMATION
  Report Type: Spontaneous
  Country: JP (occurrence: None)
  Receive Date: 20130503
  Receipt Date: 20130514
  Transmission Date: 20140414
  Serious: Yes (Other)
  Sender: FDA-Public Use
  Company Number: ADR-2013-00755

PATIENT
  Age: 44 Year
  Sex: Male

DRUGS (2)
  1. GABALON INTRATHECAL [Suspect]
  2. CEREDIST [Concomitant]

REACTIONS (2)
  - Road traffic accident [None]
  - Traumatic shock [None]
